FAERS Safety Report 8290805-1 (Version None)
Quarter: 2012Q2

REPORT INFORMATION
  Report Type: 
  Country: None (occurrence: None)
  Receive Date: 20120417
  Receipt Date: 20120411
  Transmission Date: 20120825
  Serious: Yes (Death, Life-Threatening, Hospitalization)
  Sender: FDA-Public Use
  Company Number: US-AMGEN-USACT2011062701

PATIENT
  Age: 36 Year
  Sex: Male
  Weight: 92.6 kg

DRUGS (24)
  1. SODIUM CHLORIDE [Concomitant]
     Indication: HYPERCALCAEMIA OF MALIGNANCY
     Dosage: 1000 ML, UNK
     Route: 042
     Dates: start: 20111017, end: 20111128
  2. HEPARIN LOCK-FLUSH [Concomitant]
     Indication: CENTRAL VENOUS CATHETERISATION
     Dosage: UNK
     Route: 042
     Dates: start: 20110823, end: 20111128
  3. FLUOROURACIL [Concomitant]
     Dosage: UNK
     Dates: start: 20110823, end: 20111027
  4. POTASSIUM CHLORIDE [Concomitant]
     Indication: HYPOKALAEMIA
     Dosage: 40 MUG, UNK
     Route: 042
     Dates: start: 20111006, end: 20111006
  5. ACETAMINOPHEN [Concomitant]
     Indication: PYREXIA
     Dosage: 325 MG, UNK
     Route: 048
     Dates: start: 20111028, end: 20111128
  6. HERBALIFE PRODUCTS [Concomitant]
     Indication: SUPPLEMENTATION THERAPY
     Dosage: 1 UNK, UNK
     Route: 048
     Dates: start: 20110915
  7. DENOSUMAB [Suspect]
     Indication: HYPERCALCAEMIA OF MALIGNANCY
     Dosage: 1.7 ML, UNK
     Dates: start: 20111025, end: 20111122
  8. OXALIPLATIN [Concomitant]
     Dosage: UNK
     Dates: start: 20110823, end: 20111027
  9. GEMCITABINE [Concomitant]
     Dosage: UNK
     Dates: start: 20111110
  10. METOPROLOL TARTRATE [Concomitant]
     Indication: HYPERTENSION
     Dosage: 25 MG, UNK
     Route: 048
     Dates: start: 20110715, end: 20111128
  11. LEUCOVORIN CALCIUM [Concomitant]
     Dosage: UNK
     Dates: start: 20110823, end: 20111027
  12. PROCHLORPERAZINE [Concomitant]
     Indication: NAUSEA
     Dosage: 10 MG, UNK
     Route: 048
     Dates: start: 20110823, end: 20111128
  13. MIRALAX [Concomitant]
     Indication: CONSTIPATION
     Dosage: 17 G, UNK
     Route: 048
     Dates: start: 20111007, end: 20111128
  14. DEXAMETHASONE [Concomitant]
     Indication: PROPHYLAXIS
     Dosage: 10 MG, UNK
     Route: 042
     Dates: start: 20110823, end: 20111128
  15. MEGACE [Concomitant]
     Indication: DECREASED APPETITE
     Dosage: 40 MG, UNK
     Route: 048
     Dates: start: 20111110, end: 20111128
  16. NEXIUM [Concomitant]
     Indication: DYSPEPSIA
     Dosage: 40 MG, UNK
     Route: 048
     Dates: start: 20111007, end: 20111024
  17. MULTI-VITAMINS [Concomitant]
     Indication: SUPPLEMENTATION THERAPY
     Dosage: UNK
     Route: 048
     Dates: start: 20110915
  18. ZOMETA [Concomitant]
     Indication: HYPERCALCAEMIA OF MALIGNANCY
     Dosage: 4 MG, UNK
     Route: 042
     Dates: start: 20110920, end: 20111013
  19. DULCOLAX [Concomitant]
     Indication: CONSTIPATION
     Dosage: 5 MG, UNK
     Route: 048
     Dates: start: 20111007, end: 20111128
  20. ERGOCALCIFEROL [Concomitant]
     Indication: VITAMIN D DEFICIENCY
     Dosage: UNK
     Route: 048
     Dates: start: 20110928, end: 20111128
  21. ONDANSETRON [Concomitant]
     Indication: NAUSEA
     Dosage: UNK UNK, UNK
     Route: 048
     Dates: start: 20110823, end: 20111024
  22. NEUTRA PHOS K [Concomitant]
     Indication: HYPOPHOSPHATAEMIA
     Dosage: UNK
     Route: 048
     Dates: start: 20111007, end: 20111007
  23. LACTULOSE [Concomitant]
     Indication: CONSTIPATION
     Dosage: 20 G, UNK
     Route: 048
     Dates: start: 20111007, end: 20111007
  24. MORPHINE [Concomitant]
     Indication: PAIN
     Dosage: 15 MG, UNK
     Route: 048
     Dates: start: 20110823, end: 20111128

REACTIONS (1)
  - CARDIAC ARREST [None]
